FAERS Safety Report 15005401 (Version 1)
Quarter: 2018Q2

REPORT INFORMATION
  Report Type: Spontaneous
  Country: US (occurrence: US)
  Receive Date: 20180613
  Receipt Date: 20180613
  Transmission Date: 20180711
  Serious: Yes (Life-Threatening, Hospitalization, Other)
  Sender: FDA-Public Use
  Company Number: US-DRREDDYS-USA/USA/18/0099714

PATIENT
  Age: 25 Year
  Sex: Male

DRUGS (8)
  1. DULOXETINE DELAYED-RELEASE CAPSULES [Suspect]
     Active Substance: DULOXETINE
     Dosage: 60MG AT NIGHT
     Route: 065
  2. DULOXETINE DELAYED-RELEASE CAPSULES [Suspect]
     Active Substance: DULOXETINE
     Indication: COMPLEX REGIONAL PAIN SYNDROME
     Dosage: 30MG IN THE MORNING
     Route: 065
  3. GABAPENTIN. [Concomitant]
     Active Substance: GABAPENTIN
     Indication: COMPLEX REGIONAL PAIN SYNDROME
     Route: 065
  4. TIZANIDINE. [Concomitant]
     Active Substance: TIZANIDINE
     Indication: COMPLEX REGIONAL PAIN SYNDROME
     Route: 065
  5. ONDANSETRON [Suspect]
     Active Substance: ONDANSETRON
     Indication: NAUSEA
     Dosage: TOTAL OF FOUR DOSES OF 4 MG INTRAVENOUS IN THE FIRST TWO DAYS.
     Route: 042
  6. LAMOTRIGINE TABLETS [Suspect]
     Active Substance: LAMOTRIGINE
     Indication: COMPLEX REGIONAL PAIN SYNDROME
     Route: 065
  7. OXYCODONE [Concomitant]
     Active Substance: OXYCODONE
     Indication: COMPLEX REGIONAL PAIN SYNDROME
     Route: 065
  8. DICLOFENAC [Concomitant]
     Active Substance: DICLOFENAC
     Indication: COMPLEX REGIONAL PAIN SYNDROME
     Route: 065

REACTIONS (1)
  - Serotonin syndrome [Recovered/Resolved]
